FAERS Safety Report 4386148-9 (Version None)
Quarter: 2004Q2

REPORT INFORMATION
  Report Type: 
  Country: None (occurrence: None)
  Receive Date: 20040622
  Receipt Date: 20040609
  Transmission Date: 20050107
  Serious: Yes (Other)
  Sender: FDA-Public Use
  Company Number: 2004039114

PATIENT
  Age: 67 Year
  Sex: Female
  Weight: 81.6475 kg

DRUGS (8)
  1. NEURONTIN [Suspect]
     Indication: TREMOR
     Dosage: 600 MG (300 MG, 2 IN 1 D), ORAL
     Route: 048
  2. QUININE SULFATE [Concomitant]
  3. NITROFURANTOIN [Concomitant]
  4. PROPRANOLOL HYDROCHLORIDE [Concomitant]
  5. FLUOXETINE [Concomitant]
  6. ZOLPIDEM TARTRATE [Concomitant]
  7. MORPHINE [Concomitant]
  8. VICODIN [Concomitant]

REACTIONS (6)
  - ANOREXIA [None]
  - BODY HEIGHT DECREASED [None]
  - CARCINOMA [None]
  - IMPAIRED DRIVING ABILITY [None]
  - SPINAL DISORDER [None]
  - WEIGHT INCREASED [None]
